FAERS Safety Report 7244527-6 (Version None)
Quarter: 2011Q1

REPORT INFORMATION
  Report Type: 
  Country: None (occurrence: None)
  Receive Date: 20110125
  Receipt Date: 20110117
  Transmission Date: 20110831
  Serious: Yes (Other)
  Sender: FDA-Public Use
  Company Number: US-ELI_LILLY_AND_COMPANY-US201101004272

PATIENT
  Sex: Male

DRUGS (14)
  1. HYDROCHLOROTHIAZIDE [Concomitant]
     Dosage: 25 MG, DAILY (1/D)
  2. ASPIRIN [Concomitant]
     Dosage: 325 MG, DAILY (1/D)
  3. LANTUS [Concomitant]
  4. NAPROXEN [Concomitant]
     Dosage: 500 MG, 2/D
  5. SIMVASTATIN [Concomitant]
  6. XENICAL [Concomitant]
  7. CYCLOBENZAPRINE [Concomitant]
     Dosage: 10 MG, 3/D
  8. GLIPIZIDE [Concomitant]
     Dosage: 10 MG, 2/D
  9. HUMALOG [Suspect]
  10. EXFORGE [Concomitant]
     Indication: BLOOD PRESSURE
  11. POTASSIUM [Concomitant]
     Indication: MUSCLE SPASMS
  12. HUMALOG MIX 75/25 [Suspect]
     Indication: DIABETES MELLITUS
     Dosage: UNK, AS NEEDED
     Dates: start: 20090101
  13. METFORMIN HCL [Concomitant]
     Dosage: 100 MG, 2/D
  14. OMEPRAZOLE [Concomitant]

REACTIONS (4)
  - BACK INJURY [None]
  - HEPATIC CIRRHOSIS [None]
  - WRONG DRUG ADMINISTERED [None]
  - INFLAMMATION [None]
